FAERS Safety Report 5143114-3 (Version None)
Quarter: 2006Q4

REPORT INFORMATION
  Report Type: 
  Country: None (occurrence: None)
  Receive Date: 20061031
  Receipt Date: 20061031
  Transmission Date: 20070319
  Serious: Yes (Death)
  Sender: FDA-Public Use
  Company Number: None

PATIENT
  Age: 71 Year
  Sex: Female

DRUGS (24)
  1. LYMPHAZURIN [Suspect]
     Indication: BIOPSY LYMPH GLAND
     Dosage: 2 ML  ONCE  ID
     Route: 023
     Dates: start: 20060919, end: 20060919
  2. LYMPHAZURIN [Suspect]
     Indication: BREAST CANCER
     Dosage: 2 ML  ONCE  ID
     Route: 023
     Dates: start: 20060919, end: 20060919
  3. MIDAZOLAM [Concomitant]
  4. ETOMIDATE [Concomitant]
  5. FENTANYL CITRATE [Concomitant]
  6. LIDOCAINE [Concomitant]
  7. ROCURONIUM BROM. [Concomitant]
  8. SUCCINYL CHOLINE [Concomitant]
  9. CLARITIN [Concomitant]
  10. ALEVE [Concomitant]
  11. NEXIUM [Concomitant]
  12. COREG [Concomitant]
  13. POTASSIUM CHLORIDE [Concomitant]
  14. IMDUR [Concomitant]
  15. LANTUS [Concomitant]
  16. AMARYL [Concomitant]
  17. AMBIEN [Concomitant]
  18. DIGOXIN [Concomitant]
  19. COUMADIN [Concomitant]
  20. ALDACTONE [Concomitant]
  21. LASIX [Concomitant]
  22. ASPIRIN [Concomitant]
  23. VYTORIN [Concomitant]
  24. ALTACE [Concomitant]

REACTIONS (4)
  - ANAPHYLACTIC SHOCK [None]
  - CARDIAC ARREST [None]
  - CARDIOVERSION [None]
  - PROCEDURAL HYPOTENSION [None]
